FAERS Safety Report 6769090-5 (Version None)
Quarter: 2010Q2

REPORT INFORMATION
  Report Type: 
  Country: None (occurrence: None)
  Receive Date: 20100604
  Receipt Date: 20100526
  Transmission Date: 20101027
  Serious: Yes (Congenital Anomaly, Other)
  Sender: FDA-Public Use
  Company Number: 2010SP029943

PATIENT
  Age: 1 Day

DRUGS (3)
  1. VARNOLINE (DESOGESTREL/ETHINYLESTRADIOL /00570801/) [Suspect]
     Indication: DRUG EXPOSURE DURING PREGNANCY
     Dosage: ;TRPL
     Route: 064
  2. RIFINAH (RIFINAH) [Suspect]
     Indication: DRUG EXPOSURE DURING PREGNANCY
     Dosage: 2 DF;QD;TRPL
     Route: 064
     Dates: start: 20070501
  3. ADALIMUMAB (ADALIMUMAB) [Suspect]
     Indication: DRUG EXPOSURE DURING PREGNANCY
     Dosage: 40 MG ;QOW;TRPL
     Route: 064
     Dates: start: 20070713, end: 20071130

REACTIONS (2)
  - CRANIOSYNOSTOSIS [None]
  - MATERNAL DRUGS AFFECTING FOETUS [None]
